FAERS Safety Report 19380046 (Version 1)
Quarter: 2021Q2

REPORT INFORMATION
  Report Type: Spontaneous
  Country: JP (occurrence: JP)
  Receive Date: 20210607
  Receipt Date: 20210607
  Transmission Date: 20210717
  Serious: Yes (Hospitalization, Other)
  Sender: FDA-Public Use
  Company Number: NVSJ2021JP008335

PATIENT
  Age: 40 Year
  Sex: Female

DRUGS (15)
  1. CERTICAN [Suspect]
     Active Substance: EVEROLIMUS
     Dosage: 2 MG
     Route: 048
  2. CERTICAN [Suspect]
     Active Substance: EVEROLIMUS
     Dosage: 1.5 MG
     Route: 048
  3. CELLCEPT [Concomitant]
     Active Substance: MYCOPHENOLATE MOFETIL\MYCOPHENOLATE MOFETIL HYDROCHLORIDE
     Dosage: 1000 MG
     Route: 065
  4. CERTICAN [Suspect]
     Active Substance: EVEROLIMUS
     Dosage: 0.75 MG
     Route: 048
  5. METHYLPREDNISOLONE. [Concomitant]
     Active Substance: METHYLPREDNISOLONE
     Indication: PRODUCT USED FOR UNKNOWN INDICATION
     Dosage: 4 MG
     Route: 065
  6. IMURAN [Concomitant]
     Active Substance: AZATHIOPRINE
     Indication: PRODUCT USED FOR UNKNOWN INDICATION
     Dosage: 50 MG
     Route: 065
  7. CELLCEPT [Concomitant]
     Active Substance: MYCOPHENOLATE MOFETIL\MYCOPHENOLATE MOFETIL HYDROCHLORIDE
     Indication: PRODUCT USED FOR UNKNOWN INDICATION
     Dosage: 750 MG
     Route: 065
  8. CERTICAN [Suspect]
     Active Substance: EVEROLIMUS
     Indication: PROPHYLAXIS AGAINST TRANSPLANT REJECTION
     Dosage: 1.5 MG
     Route: 048
  9. TACROLIMUS. [Concomitant]
     Active Substance: TACROLIMUS
     Dosage: 7 MG
     Route: 065
  10. NEORAL [Suspect]
     Active Substance: CYCLOSPORINE
     Indication: PROPHYLAXIS AGAINST TRANSPLANT REJECTION
     Dosage: 50 MG
     Route: 048
  11. TACROLIMUS. [Concomitant]
     Active Substance: TACROLIMUS
     Indication: PRODUCT USED FOR UNKNOWN INDICATION
     Dosage: 3 MG
     Route: 065
  12. TACROLIMUS. [Concomitant]
     Active Substance: TACROLIMUS
     Dosage: 5 MG
     Route: 065
  13. TACROLIMUS. [Concomitant]
     Active Substance: TACROLIMUS
     Dosage: 6 MG
     Route: 065
  14. CERTICAN [Suspect]
     Active Substance: EVEROLIMUS
     Dosage: 1 MG
     Route: 048
  15. TACROLIMUS. [Concomitant]
     Active Substance: TACROLIMUS
     Dosage: 4 MG
     Route: 065

REACTIONS (6)
  - Blood creatinine increased [Unknown]
  - Renal impairment [Unknown]
  - Amnesia [Recovering/Resolving]
  - Proteinuria [Unknown]
  - Post transplant lymphoproliferative disorder [Recovering/Resolving]
  - Transplant rejection [Unknown]

NARRATIVE: CASE EVENT DATE: 202009
